FAERS Safety Report 8821908 (Version 1)
Quarter: 2012Q4

REPORT INFORMATION
  Report Type: 
  Country: BR (occurrence: BR)
  Receive Date: 20121003
  Receipt Date: 20121003
  Transmission Date: 20130627
  Serious: Yes (Other)
  Sender: FDA-Public Use
  Company Number: BR-009507513-1204BRA00022

PATIENT
  Age: 54 Year
  Sex: Male
  Weight: 75 kg

DRUGS (4)
  1. VICTRELIS [Suspect]
     Indication: HEPATITIS C
     Dosage: 800 mg, tid
     Route: 048
     Dates: start: 20120223, end: 20120731
  2. REBETOL [Suspect]
     Indication: HEPATITIS C
     Dosage: UNK, Unknown
     Route: 048
     Dates: start: 20120126, end: 20120731
  3. INTERFERON (UNSPECIFIED) [Concomitant]
     Indication: HEPATITIS C
     Dosage: 100 Microgram, Unknown
     Route: 058
     Dates: start: 20120126, end: 20120731
  4. ATACAND DUO [Concomitant]
     Indication: HYPERTENSION
     Dosage: 16 mg, Unknown
     Route: 048

REACTIONS (2)
  - Hepatic cancer [Not Recovered/Not Resolved]
  - Underdose [Unknown]
